FAERS Safety Report 16465067 (Version 2)
Quarter: 2019Q4

REPORT INFORMATION
  Report Type: Spontaneous
  Country: FR (occurrence: FR)
  Receive Date: 20190621
  Receipt Date: 20191114
  Transmission Date: 20200122
  Serious: Yes (Death, Hospitalization)
  Sender: FDA-Public Use
  Company Number: FR-MYLANLABS-2019M1057860

PATIENT
  Age: 74 Year
  Sex: Female

DRUGS (7)
  1. CELECOXIB. [Suspect]
     Active Substance: CELECOXIB
     Indication: BACK PAIN
     Dosage: 200 MILLIGRAM, TOTAL (200 MG, SINGLE)
     Dates: start: 20170406, end: 20170406
  2. URSODESOXYCHOLIC ACID [Suspect]
     Active Substance: URSODIOL
     Indication: PRURITUS
     Dosage: 10 MILLIGRAM/KILOGRAM, QD (ON DAY-7 OF HOSPITALISATION)
  3. URSODESOXYCHOLIC ACID [Suspect]
     Active Substance: URSODIOL
     Indication: CHOLESTASIS
  4. RIFAMPICIN [Suspect]
     Active Substance: RIFAMPIN
     Indication: PRURITUS
     Dosage: UNK
  5. URSODESOXYCHOLIC ACID [Suspect]
     Active Substance: URSODIOL
     Indication: JAUNDICE
  6. CELECOXIB. [Suspect]
     Active Substance: CELECOXIB
     Dosage: 200 MILLIGRAM
     Dates: start: 20170406
  7. HYDROXYZINE [Suspect]
     Active Substance: HYDROXYZINE HYDROCHLORIDE
     Indication: PRURITUS
     Dosage: UNK

REACTIONS (6)
  - Vanishing bile duct syndrome [Fatal]
  - Decreased appetite [Unknown]
  - Hepatitis cholestatic [Fatal]
  - Malnutrition [Unknown]
  - Multiple organ dysfunction syndrome [Fatal]
  - Drug ineffective [Unknown]
